FAERS Safety Report 7392752-6 (Version None)
Quarter: 2011Q2

REPORT INFORMATION
  Report Type: 
  Country: None (occurrence: None)
  Receive Date: 20110404
  Receipt Date: 20110325
  Transmission Date: 20111010
  Serious: Yes (Other)
  Sender: FDA-Public Use
  Company Number: AT-ASTRAZENECA-2011SE17325

PATIENT
  Age: 43 Year
  Sex: Male

DRUGS (5)
  1. INEGY [Interacting]
     Dosage: 10-20 MG DAILY
     Route: 048
     Dates: start: 20110213, end: 20110223
  2. PSYCHOPAX [Concomitant]
     Indication: SCHIZOAFFECTIVE DISORDER
     Route: 048
     Dates: start: 20100601
  3. FLUOXETINE HCL [Concomitant]
     Indication: DEPRESSION
     Route: 048
     Dates: start: 20101201, end: 20110223
  4. SEROQUEL [Suspect]
     Indication: SCHIZOAFFECTIVE DISORDER
     Route: 048
     Dates: start: 20100601
  5. INEGY [Interacting]
     Indication: HYPERLIPIDAEMIA
     Route: 048
     Dates: start: 20100101, end: 20100101

REACTIONS (2)
  - DRUG INTERACTION [None]
  - HYPOMANIA [None]
